FAERS Safety Report 7361268-5 (Version None)
Quarter: 2011Q1

REPORT INFORMATION
  Report Type: 
  Country: None (occurrence: None)
  Receive Date: 20110318
  Receipt Date: 20110310
  Transmission Date: 20110831
  Serious: Yes (Hospitalization)
  Sender: FDA-Public Use
  Company Number: A0731998A

PATIENT
  Age: 68 Year
  Sex: Female
  Weight: 66.4 kg

DRUGS (5)
  1. AVANDAMET [Suspect]
     Indication: DIABETES MELLITUS
     Route: 048
  2. AVANDIA [Suspect]
     Route: 048
     Dates: start: 20050101, end: 20070101
  3. METOPROLOL SUCCINATE [Concomitant]
  4. LOTREL [Concomitant]
  5. RANITIDINE [Concomitant]

REACTIONS (12)
  - CEREBROVASCULAR ACCIDENT [None]
  - GASTROINTESTINAL DISORDER [None]
  - DYSPNOEA [None]
  - LACTIC ACIDOSIS [None]
  - CARDIOVASCULAR DISORDER [None]
  - MYOCARDIAL INFARCTION [None]
  - HYPERTENSION [None]
  - DYSPEPSIA [None]
  - PAIN [None]
  - AMNESIA [None]
  - OEDEMA [None]
  - DEPRESSION [None]
